FAERS Safety Report 5720807-8 (Version None)
Quarter: 2008Q2

REPORT INFORMATION
  Report Type: 
  Country: None (occurrence: None)
  Receive Date: 20080425
  Receipt Date: 20080425
  Transmission Date: 20081010
  Serious: Yes (Hospitalization, Other)
  Sender: FDA-Public Use
  Company Number: None

PATIENT
  Age: 42 Year
  Sex: Female
  Weight: 65.7716 kg

DRUGS (2)
  1. CLINDAMYCIN [Suspect]
     Indication: CELLULITIS
     Dosage: 1 TABLET 3 X PER DAY PO
     Route: 048
     Dates: start: 20071026, end: 20071028
  2. CLINDAMYCIN [Suspect]
     Dosage: IV ONE DOSE IV
     Route: 042

REACTIONS (10)
  - ABDOMINAL PAIN UPPER [None]
  - CONSTIPATION [None]
  - DIARRHOEA [None]
  - DYSPEPSIA [None]
  - FLATULENCE [None]
  - GALLBLADDER DISORDER [None]
  - NAUSEA [None]
  - PAIN [None]
  - STAPHYLOCOCCAL INFECTION [None]
  - VOMITING [None]
